FAERS Safety Report 13433974 (Version 1)
Quarter: 2017Q2

REPORT INFORMATION
  Report Type: Spontaneous
  Country: US (occurrence: US)
  Receive Date: 20170412
  Receipt Date: 20170412
  Transmission Date: 20170830
  Serious: No
  Sender: FDA-Public Use
  Company Number: None

PATIENT
  Age: 75 Year
  Sex: Female
  Weight: 54.43 kg

DRUGS (17)
  1. MAGNESIUM [Concomitant]
     Active Substance: MAGNESIUM
  2. SIMVASTATIN. [Concomitant]
     Active Substance: SIMVASTATIN
  3. DILTIAZEM. [Concomitant]
     Active Substance: DILTIAZEM
  4. LISINOPRIL. [Concomitant]
     Active Substance: LISINOPRIL
  5. VITAMIN C [Concomitant]
     Active Substance: ASCORBIC ACID
  6. AMITRIPTYLINE HCL [Concomitant]
     Active Substance: AMITRIPTYLINE
  7. VITAMIN E [Concomitant]
     Active Substance: .ALPHA.-TOCOPHEROL
  8. HYDROCODONE-ACETAMINOPHEN [Concomitant]
     Active Substance: ACETAMINOPHEN\HYDROCODONE
  9. OCUVITE [Concomitant]
     Active Substance: VITAMINS
  10. VITAMIN D [Concomitant]
     Active Substance: CHOLECALCIFEROL
  11. LINZESS [Suspect]
     Active Substance: LINACLOTIDE
     Indication: IRRITABLE BOWEL SYNDROME
     Route: 048
     Dates: start: 20170325, end: 20170325
  12. COQ10 [Concomitant]
     Active Substance: UBIDECARENONE
  13. METOPROLOL SUCCINATE. [Concomitant]
     Active Substance: METOPROLOL SUCCINATE
  14. BEE PROPOLIS [Concomitant]
  15. ASPIRIN. [Concomitant]
     Active Substance: ASPIRIN
  16. GLYCERIN SUPPOSITORY [Concomitant]
     Active Substance: GLYCERIN
  17. MAGNESIUM HYDROXIDE (MILK OF MAGNESIA) [Concomitant]

REACTIONS (6)
  - Hypoaesthesia [None]
  - Feeling of despair [None]
  - Blood pressure increased [None]
  - Gastrooesophageal reflux disease [None]
  - Loss of personal independence in daily activities [None]
  - Diarrhoea [None]

NARRATIVE: CASE EVENT DATE: 20170325
